FAERS Safety Report 5265083-8 (Version None)
Quarter: 2007Q1

REPORT INFORMATION
  Report Type: 
  Country: None (occurrence: None)
  Receive Date: 20061122
  Receipt Date: 20051004
  Transmission Date: 20070707
  Serious: Yes (Other)
  Sender: FDA-Public Use
  Company Number: 2006MP001153

PATIENT
  Sex: Female
  Weight: 70 kg

DRUGS (4)
  1. GLIADEL [Suspect]
     Indication: GLIOBLASTOMA MULTIFORME
     Dosage: X1; ICER
     Dates: start: 20050420
  2. DEXAMETHASONE [Concomitant]
  3. ZANTAC [Concomitant]
  4. DEPAKENE [Concomitant]

REACTIONS (1)
  - PURULENT DISCHARGE [None]
